FAERS Safety Report 24876252 (Version 1)
Quarter: 2025Q1

REPORT INFORMATION
  Report Type: Spontaneous
  Country: MY (occurrence: MY)
  Receive Date: 20250123
  Receipt Date: 20250123
  Transmission Date: 20250409
  Serious: Yes (Other)
  Sender: BAXTER
  Company Number: MY-BAXTER-2025BAX010378

PATIENT
  Age: 59 Year
  Sex: Male

DRUGS (1)
  1. MESNA [Suspect]
     Active Substance: MESNA
     Indication: Premedication
     Route: 041

REACTIONS (5)
  - Cold sweat [Recovered/Resolved]
  - Dyspnoea [Recovered/Resolved]
  - Loss of consciousness [Recovered/Resolved]
  - Blood pressure increased [Recovered/Resolved]
  - Tachycardia [Recovered/Resolved]
